FAERS Safety Report 17425136 (Version 2)
Quarter: 2020Q1

REPORT INFORMATION
  Report Type: Report from Study
  Country: None (occurrence: US)
  Receive Date: 20200218
  Receipt Date: 20200223
  Transmission Date: 20200409
  Serious: Yes (Other)
  Sender: FDA-Public Use
  Company Number: US-ABBVIE-20K-163-3272699-00

PATIENT
  Age: 64 Year
  Sex: Female

DRUGS (1)
  1. MAVYRET [Suspect]
     Active Substance: GLECAPREVIR\PIBRENTASVIR
     Indication: PRODUCT USED FOR UNKNOWN INDICATION
     Route: 048
     Dates: start: 20200201

REACTIONS (10)
  - Diarrhoea [Recovered/Resolved]
  - Fatigue [Recovered/Resolved]
  - Renal failure [Unknown]
  - Weight decreased [Unknown]
  - Dysuria [Recovering/Resolving]
  - Back pain [Recovering/Resolving]
  - Vomiting [Recovering/Resolving]
  - Hypophagia [Recovering/Resolving]
  - Secretion discharge [Recovered/Resolved]
  - Gastroenteritis norovirus [Unknown]

NARRATIVE: CASE EVENT DATE: 202002
